FAERS Safety Report 10009417 (Version 2)
Quarter: 2014Q1

REPORT INFORMATION
  Report Type: Spontaneous
  Country: US (occurrence: US)
  Receive Date: 20140313
  Receipt Date: 20140313
  Transmission Date: 20141002
  Serious: No
  Sender: FDA-Public Use
  Company Number: US-INCYTE CORPORATION-2012IN001473

PATIENT
  Age: 73 Year
  Sex: Female
  Weight: 150.4 kg

DRUGS (6)
  1. JAKAFI [Suspect]
     Indication: POLYCYTHAEMIA VERA
     Dosage: 20 MG, BID
     Route: 048
  2. SIMVASTATIN [Concomitant]
  3. CARVEDILOL [Concomitant]
  4. HYDROCORTISONE [Concomitant]
  5. LETROZOLE [Concomitant]
  6. MULTIVITAMINS [Concomitant]

REACTIONS (1)
  - Constipation [Unknown]
